FAERS Safety Report 20526724 (Version 1)
Quarter: 2022Q1

REPORT INFORMATION
  Report Type: Spontaneous
  Country: US (occurrence: None)
  Receive Date: 20220227
  Receipt Date: 20220227
  Transmission Date: 20220423
  Serious: Yes (Disabling)
  Sender: FDA-Public Use
  Company Number: None

PATIENT
  Age: 45 Year
  Sex: Male
  Weight: 83.25 kg

DRUGS (10)
  1. BUPRENORPHINE SUBLINGUAL [Suspect]
     Active Substance: BUPRENORPHINE HYDROCHLORIDE
     Indication: Product used for unknown indication
     Dosage: OTHER QUANTITY : 90 TABLET(S);?FREQUENCY : 3 TIMES A DAY;?
     Route: 048
     Dates: start: 20101101, end: 20220201
  2. LISINOPRIL [Concomitant]
     Active Substance: LISINOPRIL
  3. AMLODIPINE BESYLATE [Concomitant]
     Active Substance: AMLODIPINE BESYLATE
  4. LEVOTHYROXINE [Concomitant]
     Active Substance: LEVOTHYROXINE
  5. GLUCOSAMINE [Concomitant]
     Active Substance: GLUCOSAMINE
  6. MAGNESIUM [Concomitant]
     Active Substance: MAGNESIUM
  7. VITAMINS [Concomitant]
     Active Substance: VITAMINS
  8. FISH OIL [Concomitant]
     Active Substance: FISH OIL
  9. TARAXACUM OFFICINALE ROOT [Concomitant]
     Active Substance: TARAXACUM OFFICINALE ROOT
  10. APPLE CINNAMON TEA [Concomitant]

REACTIONS (4)
  - Gingival disorder [None]
  - Tooth loss [None]
  - Gingival recession [None]
  - Pain [None]

NARRATIVE: CASE EVENT DATE: 20160101
